FAERS Safety Report 7465024-9 (Version None)
Quarter: 2011Q2

REPORT INFORMATION
  Report Type: 
  Country: None (occurrence: None)
  Receive Date: 20110509
  Receipt Date: 20110428
  Transmission Date: 20111010
  Serious: Yes (Other)
  Sender: FDA-Public Use
  Company Number: US-US-EMD SERONO, INC.-7044538

PATIENT
  Sex: Male

DRUGS (4)
  1. REBIF [Suspect]
     Indication: PRODUCT USED FOR UNKNOWN INDICATION
     Route: 058
     Dates: start: 20031028, end: 20110301
  2. FLOIC ACID [Concomitant]
  3. NAPROXEN (ALEVE) [Concomitant]
     Indication: INFLUENZA
  4. ASPIRIN [Concomitant]
     Indication: PROPHYLAXIS

REACTIONS (4)
  - HEPATIC NECROSIS [None]
  - FEELING COLD [None]
  - HYPERHIDROSIS [None]
  - LIVER FUNCTION TEST ABNORMAL [None]
